FAERS Safety Report 23590608 (Version 3)
Quarter: 2024Q1

REPORT INFORMATION
  Report Type: Report from Study
  Country: GB (occurrence: GB)
  Receive Date: 20240304
  Receipt Date: 20240306
  Transmission Date: 20240409
  Serious: Yes (Hospitalization, Other)
  Sender: FDA-Public Use
  Company Number: GB-ABBVIE-5660443

PATIENT
  Sex: Male

DRUGS (3)
  1. CARBIDOPA\LEVODOPA [Suspect]
     Active Substance: CARBIDOPA\LEVODOPA
     Indication: Parkinson^s disease
     Dosage: 20MG/5MG
     Route: 050
     Dates: start: 2024
  2. CARBIDOPA\LEVODOPA [Suspect]
     Active Substance: CARBIDOPA\LEVODOPA
     Dosage: 20MG/5MG
     Route: 050
  3. CARBIDOPA\LEVODOPA [Suspect]
     Active Substance: CARBIDOPA\LEVODOPA
     Dosage: MD: 8.9MLS CR:2.4MLS ED: 1.5MLS (DAY TIME DOSES ONLY)
     Route: 050
     Dates: end: 2024

REACTIONS (10)
  - Fall [Unknown]
  - Urinary tract infection [Recovering/Resolving]
  - Anger [Unknown]
  - Head injury [Unknown]
  - Confusional state [Not Recovered/Not Resolved]
  - Blood pressure decreased [Unknown]
  - Face injury [Unknown]
  - Joint injury [Unknown]
  - Loss of consciousness [Recovered/Resolved]
  - Wrong technique in device usage process [Not Recovered/Not Resolved]

NARRATIVE: CASE EVENT DATE: 20240201
